FAERS Safety Report 5654396-3 (Version None)
Quarter: 2008Q1

REPORT INFORMATION
  Report Type: 
  Country: None (occurrence: None)
  Receive Date: 20080306
  Receipt Date: 20080229
  Transmission Date: 20080703
  Serious: Yes (Hospitalization)
  Sender: FDA-Public Use
  Company Number: US-BAXTER-2008BH001843

PATIENT
  Age: 48 Year
  Sex: Male
  Weight: 88 kg

DRUGS (9)
  1. HEPARIN SODIUM [Suspect]
     Indication: STENT PLACEMENT
     Dosage: DOSE UNIT:UNKNOWN
     Route: 042
     Dates: start: 20070701, end: 20070701
  2. HEPARIN SODIUM [Suspect]
     Dosage: DOSE UNIT:UNKNOWN
     Route: 042
     Dates: start: 20070801, end: 20070801
  3. WARFARIN SODIUM [Concomitant]
     Dosage: DOSE UNIT:UNKNOWN
     Route: 065
     Dates: start: 20020101
  4. PLAVIX [Concomitant]
     Dosage: DOSE UNIT:UNKNOWN
     Route: 065
  5. SIMVASTATIN [Concomitant]
     Indication: DRUG USE FOR UNKNOWN INDICATION
     Dosage: DOSE UNIT:UNKNOWN
     Route: 065
  6. GEMFIBROZIL [Concomitant]
     Indication: BLOOD CHOLESTEROL
     Dosage: DOSE UNIT:UNKNOWN
     Route: 065
  7. SOTALOL [Concomitant]
     Indication: ATRIAL FIBRILLATION
     Route: 065
     Dates: start: 20080301
  8. VITAMINS [Concomitant]
     Indication: DRUG USE FOR UNKNOWN INDICATION
     Dosage: DOSE UNIT:UNKNOWN
     Route: 065
  9. ASPIRIN [Concomitant]
     Indication: DRUG USE FOR UNKNOWN INDICATION
     Dosage: DOSE UNIT:UNKNOWN
     Route: 065

REACTIONS (3)
  - BLOOD PRESSURE DECREASED [None]
  - HEART RATE DECREASED [None]
  - RASH [None]
